FAERS Safety Report 20721999 (Version 1)
Quarter: 2022Q2

REPORT INFORMATION
  Report Type: Spontaneous
  Country: US (occurrence: US)
  Receive Date: 20220418
  Receipt Date: 20220418
  Transmission Date: 20220721
  Serious: No
  Sender: FDA-Public Use
  Company Number: US-PFIZER INC-202101227286

PATIENT
  Age: 72 Year
  Sex: Male

DRUGS (1)
  1. XELJANZ XR [Suspect]
     Active Substance: TOFACITINIB CITRATE
     Indication: Arthritis
     Dosage: 11MG
     Dates: start: 20210722, end: 202108

REACTIONS (3)
  - Drug ineffective for unapproved indication [Unknown]
  - Abdominal pain upper [Unknown]
  - Off label use [Unknown]

NARRATIVE: CASE EVENT DATE: 20210101
